FAERS Safety Report 24908858 (Version 1)
Quarter: 2025Q1

REPORT INFORMATION
  Report Type: Report from Study
  Country: AR (occurrence: AR)
  Receive Date: 20250131
  Receipt Date: 20250131
  Transmission Date: 20250408
  Serious: Yes (Hospitalization, Other)
  Sender: JOHNSON AND JOHNSON
  Company Number: AR-JNJFOC-20240932174

PATIENT
  Sex: Female
  Weight: 64 kg

DRUGS (2)
  1. SIMPONI [Suspect]
     Active Substance: GOLIMUMAB
     Indication: Rheumatoid arthritis
     Route: 058
     Dates: start: 20161021
  2. SIMPONI [Suspect]
     Active Substance: GOLIMUMAB

REACTIONS (9)
  - Diabetes mellitus [Recovering/Resolving]
  - Rheumatoid arthritis [Unknown]
  - Urinary tract infection [Not Recovered/Not Resolved]
  - Blood cholesterol increased [Recovering/Resolving]
  - Weight decreased [Recovering/Resolving]
  - Decreased appetite [Recovering/Resolving]
  - Malaise [Not Recovered/Not Resolved]
  - Poor peripheral circulation [Unknown]
  - Product dose omission issue [Unknown]

NARRATIVE: CASE EVENT DATE: 20180101
